FAERS Safety Report 17301288 (Version 2)
Quarter: 2020Q1

REPORT INFORMATION
  Report Type: Report from Study
  Country: IL (occurrence: IL)
  Receive Date: 20200122
  Receipt Date: 20200219
  Transmission Date: 20200409
  Serious: Yes (Other)
  Sender: FDA-Public Use
  Company Number: IL-IPSEN BIOPHARMACEUTICALS, INC.-2020-01423

PATIENT
  Age: 66 Year
  Sex: Male

DRUGS (8)
  1. TRIBEMIN [Concomitant]
     Active Substance: CYANOCOBALAMIN\PYRIDOXINE HYDROCHLORIDE\THIAMINE
  2. CREON [Concomitant]
     Active Substance: PANCRELIPASE AMYLASE\PANCRELIPASE LIPASE\PANCRELIPASE PROTEASE
  3. SOMATULINE [Suspect]
     Active Substance: LANREOTIDE ACETATE
     Indication: PANCREATIC NEUROENDOCRINE TUMOUR
     Dosage: SITE: 90 DEGREES ANGLE IN THE GLUTEUS
     Route: 058
     Dates: start: 20191218
  4. CRESTOR [Concomitant]
     Active Substance: ROSUVASTATIN CALCIUM
  5. OMNIC [Concomitant]
     Active Substance: TAMSULOSIN HYDROCHLORIDE
  6. NOCTURNO [Concomitant]
  7. TOVIAZ [Concomitant]
     Active Substance: FESOTERODINE FUMARATE
  8. ALPRALID [Concomitant]

REACTIONS (2)
  - Weight decreased [Not Recovered/Not Resolved]
  - Diarrhoea [Not Recovered/Not Resolved]

NARRATIVE: CASE EVENT DATE: 20191218
